FAERS Safety Report 19438200 (Version 2)
Quarter: 2021Q2

REPORT INFORMATION
  Report Type: Report from Study
  Country: US (occurrence: US)
  Receive Date: 20210618
  Receipt Date: 20210628
  Transmission Date: 20210717
  Serious: Yes (Hospitalization)
  Sender: FDA-Public Use
  Company Number: US-HORIZON THERAPEUTICS-HZN-2021-003421

PATIENT

DRUGS (1)
  1. TEPEZZA [Suspect]
     Active Substance: TEPROTUMUMAB-TRBW
     Indication: BASEDOW^S DISEASE
     Dosage: UNK
     Dates: start: 20210106

REACTIONS (3)
  - Glycosylated haemoglobin abnormal [Recovering/Resolving]
  - Blood glucose abnormal [Recovering/Resolving]
  - Malaise [Recovering/Resolving]
